FAERS Safety Report 12661147 (Version 2)
Quarter: 2016Q3

REPORT INFORMATION
  Report Type: Spontaneous
  Country: US (occurrence: US)
  Receive Date: 20160817
  Receipt Date: 20160901
  Transmission Date: 20161109
  Serious: No
  Sender: FDA-Public Use
  Company Number: US-RELYPSA-RLY2016000559

PATIENT
  Age: 67 Year
  Sex: Male

DRUGS (8)
  1. SEROQUEL [Concomitant]
     Active Substance: QUETIAPINE FUMARATE
  2. VELTASSA [Suspect]
     Active Substance: PATIROMER
     Dosage: 2 PACKETS (8.4 G/PACKET), QD
     Dates: start: 201603, end: 201604
  3. CRESTOR [Concomitant]
     Active Substance: ROSUVASTATIN CALCIUM
  4. VELTASSA [Suspect]
     Active Substance: PATIROMER
     Indication: HYPERKALAEMIA
     Dosage: 2 PACKETS (8.4 G/PACKET), B.I.D
     Dates: start: 201604, end: 20160427
  5. NEURONTIN [Concomitant]
     Active Substance: GABAPENTIN
  6. LEXAPRO [Concomitant]
     Active Substance: ESCITALOPRAM OXALATE
  7. COREG [Concomitant]
     Active Substance: CARVEDILOL
  8. LORAZEPAM. [Concomitant]
     Active Substance: LORAZEPAM

REACTIONS (2)
  - Constipation [Recovered/Resolved]
  - Prescribed overdose [Recovered/Resolved]

NARRATIVE: CASE EVENT DATE: 201604
